FAERS Safety Report 7540157-7 (Version None)
Quarter: 2011Q2

REPORT INFORMATION
  Report Type: 
  Country: None (occurrence: None)
  Receive Date: 20110610
  Receipt Date: 20110527
  Transmission Date: 20111010
  Serious: Yes (Other)
  Sender: FDA-Public Use
  Company Number: CA-JNJFOC-20110600675

PATIENT
  Sex: Female
  Weight: 54 kg

DRUGS (3)
  1. REMICADE [Suspect]
     Indication: CROHN'S DISEASE
     Route: 042
     Dates: start: 20081101
  2. REMICADE [Suspect]
     Dosage: 100 MG/VIAL
     Route: 042
     Dates: start: 20110101
  3. METHOTREXATE [Concomitant]
     Route: 048

REACTIONS (5)
  - ARTHRALGIA [None]
  - ABDOMINAL DISTENSION [None]
  - DIARRHOEA [None]
  - ASTHENIA [None]
  - ABDOMINAL PAIN [None]
